FAERS Safety Report 5227584-8 (Version None)
Quarter: 2007Q1

REPORT INFORMATION
  Report Type: 
  Country: None (occurrence: None)
  Receive Date: 20070202
  Receipt Date: 20070123
  Transmission Date: 20070707
  Serious: Yes (Death)
  Sender: FDA-Public Use
  Company Number: US-JNJFOC-20061104754

PATIENT
  Sex: Male
  Weight: 106.6 kg

DRUGS (9)
  1. RISPERDAL CONSTA [Suspect]
     Route: 030
  2. RISPERDAL CONSTA [Suspect]
     Indication: SCHIZOPHRENIA
     Route: 030
  3. CLOZAPINE [Concomitant]
     Indication: SCHIZOPHRENIA
     Route: 048
  4. DEPAKOTE ER [Concomitant]
     Indication: AFFECTIVE DISORDER
  5. COGENTIN [Concomitant]
     Indication: AFFECTIVE DISORDER
  6. GEODON [Concomitant]
  7. SEROQUEL [Concomitant]
  8. COLACE [Concomitant]
  9. REVIA [Concomitant]

REACTIONS (1)
  - DEATH [None]
